FAERS Safety Report 4559313-5 (Version None)
Quarter: 2005Q1

REPORT INFORMATION
  Report Type: 
  Country: None (occurrence: None)
  Receive Date: 20050124
  Receipt Date: 20050111
  Transmission Date: 20050727
  Serious: Yes (Hospitalization)
  Sender: FDA-Public Use
  Company Number: FR-JNJFOC-20040800636

PATIENT
  Age: 51 Year
  Sex: Female
  Weight: 56 kg

DRUGS (8)
  1. CAELYX [Suspect]
     Route: 042
  2. BECILAN [Suspect]
     Route: 049
  3. NEURONTIN [Suspect]
     Route: 049
  4. NEURONTIN [Suspect]
     Route: 049
  5. NEURONTIN [Suspect]
     Indication: PROPHYLAXIS
     Route: 049
  6. TAXOTERE [Suspect]
     Route: 042
  7. RADIATION THERAPY [Suspect]
     Indication: BREAST CANCER
  8. ZOPHREN [Suspect]
     Indication: VOMITING

REACTIONS (7)
  - ACUTE GENERALISED EXANTHEMATOUS PUSTULOSIS [None]
  - ANTINUCLEAR ANTIBODY POSITIVE [None]
  - APHTHOUS STOMATITIS [None]
  - NAUSEA [None]
  - SKIN INFECTION [None]
  - STEVENS-JOHNSON SYNDROME [None]
  - VOMITING [None]
